FAERS Safety Report 18107398 (Version 4)
Quarter: 2021Q2

REPORT INFORMATION
  Report Type: Report from Study
  Country: AR (occurrence: AR)
  Receive Date: 20200804
  Receipt Date: 20210527
  Transmission Date: 20210717
  Serious: Yes (Hospitalization)
  Sender: FDA-Public Use
  Company Number: NVSC2020AR018138

PATIENT
  Age: 53 Year
  Sex: Male
  Weight: 106.5 kg

DRUGS (17)
  1. MEPREDNISONE [Concomitant]
     Active Substance: MEPREDNISONE
     Dosage: UNK
     Route: 065
     Dates: start: 20200111, end: 20200112
  2. MEPREDNISONE [Concomitant]
     Active Substance: MEPREDNISONE
     Dosage: UNK
     Route: 065
     Dates: start: 20200113, end: 20200114
  3. MEPREDNISONE [Concomitant]
     Active Substance: MEPREDNISONE
     Dosage: UNK
     Route: 065
     Dates: start: 20200119, end: 20200120
  4. ISCALIMAB [Suspect]
     Active Substance: ISCALIMAB
     Indication: RENAL TRANSPLANT
     Dosage: 4 ML, Q2W
     Route: 058
     Dates: start: 20191216
  5. MYCOPHENOLATE MOFETIL. [Suspect]
     Active Substance: MYCOPHENOLATE MOFETIL
     Indication: RENAL TRANSPLANT
     Dosage: UNK
     Route: 048
     Dates: start: 20191216
  6. MEPREDNISONE [Concomitant]
     Active Substance: MEPREDNISONE
     Indication: PROPHYLAXIS AGAINST TRANSPLANT REJECTION
     Dosage: UNK
     Route: 065
     Dates: start: 20200103, end: 20200104
  7. MEPREDNISONE [Concomitant]
     Active Substance: MEPREDNISONE
     Dosage: UNK
     Route: 065
     Dates: start: 20200109, end: 20200110
  8. MEPREDNISONE [Concomitant]
     Active Substance: MEPREDNISONE
     Dosage: UNK
     Route: 065
     Dates: start: 20200121, end: 20200122
  9. CARVEDILOL. [Concomitant]
     Active Substance: CARVEDILOL
     Indication: HYPERTENSION
     Dosage: UNK
     Route: 065
     Dates: start: 20161213
  10. ROSUVASTATIN. [Concomitant]
     Active Substance: ROSUVASTATIN
     Indication: DYSLIPIDAEMIA
     Dosage: UNK
     Route: 065
     Dates: start: 20190821
  11. AMLODIPINE [Concomitant]
     Active Substance: AMLODIPINE BESYLATE
     Indication: HYPERTENSION
     Dosage: UNK
     Route: 065
     Dates: start: 20200113, end: 20200210
  12. MEPREDNISONE [Concomitant]
     Active Substance: MEPREDNISONE
     Dosage: UNK
     Route: 065
     Dates: start: 20200117, end: 20200118
  13. MEPREDNISONE [Concomitant]
     Active Substance: MEPREDNISONE
     Dosage: UNK
     Route: 065
     Dates: start: 20200123, end: 20200124
  14. MEPREDNISONE [Concomitant]
     Active Substance: MEPREDNISONE
     Dosage: UNK
     Route: 065
     Dates: start: 20200105, end: 20200106
  15. MEPREDNISONE [Concomitant]
     Active Substance: MEPREDNISONE
     Dosage: UNK
     Route: 065
     Dates: start: 20200115, end: 20200116
  16. EZETIMIBE. [Concomitant]
     Active Substance: EZETIMIBE
     Indication: DYSLIPIDAEMIA
     Dosage: UNK
     Route: 065
     Dates: start: 20161213
  17. MEPREDNISONE [Concomitant]
     Active Substance: MEPREDNISONE
     Dosage: UNK
     Route: 065
     Dates: start: 20200107, end: 20200108

REACTIONS (1)
  - Urinary tract infection [Recovered/Resolved]

NARRATIVE: CASE EVENT DATE: 20200123
